FAERS Safety Report 24777544 (Version 1)
Quarter: 2024Q4

REPORT INFORMATION
  Report Type: Spontaneous
  Country: CA (occurrence: CA)
  Receive Date: 20241226
  Receipt Date: 20241226
  Transmission Date: 20250114
  Serious: Yes (Death, Hospitalization, Other)
  Sender: TEVA
  Company Number: CA-TEVA-VS-3278739

PATIENT
  Age: 78 Year
  Sex: Female

DRUGS (3)
  1. CLOPIDOGREL BISULFATE [Suspect]
     Active Substance: CLOPIDOGREL BISULFATE
     Indication: Product used for unknown indication
     Route: 065
  2. XARELTO [Suspect]
     Active Substance: RIVAROXABAN
     Indication: Atrial fibrillation
     Route: 065
  3. ASPIRIN [Suspect]
     Active Substance: ASPIRIN
     Indication: Product used for unknown indication
     Dosage: DOSE FORM: NOT SPECIFIED
     Route: 065

REACTIONS (5)
  - COVID-19 [Fatal]
  - Gastrointestinal haemorrhage [Fatal]
  - Gastritis [Fatal]
  - Labelled drug-drug interaction medication error [Fatal]
  - Upper gastrointestinal haemorrhage [Fatal]
